FAERS Safety Report 5381688-8 (Version None)
Quarter: 2007Q2

REPORT INFORMATION
  Report Type: 
  Country: None (occurrence: None)
  Receive Date: 20070629
  Receipt Date: 20060824
  Transmission Date: 20071010
  Serious: Yes (Other)
  Sender: FDA-Public Use
  Company Number: 2006103812

PATIENT
  Sex: Female

DRUGS (4)
  1. ZOLOFT [Suspect]
     Indication: DEPRESSION
     Dosage: 50 MG (50 MG, 1 IN 1 D)
     Dates: start: 20060801, end: 20060801
  2. ADVICOR [Concomitant]
  3. IBUPROFEN [Concomitant]
  4. MULTI-VITAMINS [Concomitant]

REACTIONS (3)
  - BLINDNESS [None]
  - HEADACHE [None]
  - VISION BLURRED [None]
